FAERS Safety Report 8009491-0 (Version None)
Quarter: 2011Q4

REPORT INFORMATION
  Report Type: 
  Country: None (occurrence: None)
  Receive Date: 20111227
  Receipt Date: 20111214
  Transmission Date: 20120403
  Serious: Yes (Hospitalization)
  Sender: FDA-Public Use
  Company Number: JP-ELI_LILLY_AND_COMPANY-JP201109005699

PATIENT
  Age: 75 Year
  Sex: Female

DRUGS (1)
  1. FORTEO [Suspect]
     Dosage: UNK
     Route: 058

REACTIONS (7)
  - ENTERITIS INFECTIOUS [None]
  - ECZEMA [None]
  - URINE ODOUR ABNORMAL [None]
  - INJECTION SITE ERYTHEMA [None]
  - DIARRHOEA [None]
  - VOMITING [None]
  - INJECTION SITE HAEMATOMA [None]
